FAERS Safety Report 12562301 (Version 2)
Quarter: 2016Q3

REPORT INFORMATION
  Report Type: Not Available
  Country: BR (occurrence: BR)
  Receive Date: 20160715
  Receipt Date: 20160725
  Transmission Date: 20161109
  Serious: Yes (Other)
  Sender: FDA-Public Use
  Company Number: BR-AKORN-35031

PATIENT
  Sex: Male

DRUGS (1)
  1. COSOPT [Suspect]
     Active Substance: DORZOLAMIDE HYDROCHLORIDE\TIMOLOL MALEATE

REACTIONS (3)
  - Cataract [Recovered/Resolved]
  - Osteoarthritis [Not Recovered/Not Resolved]
  - Dry mouth [Unknown]
